FAERS Safety Report 7237657-6 (Version None)
Quarter: 2011Q1

REPORT INFORMATION
  Report Type: 
  Country: None (occurrence: None)
  Receive Date: 20110121
  Receipt Date: 20110111
  Transmission Date: 20110831
  Serious: Yes (Hospitalization)
  Sender: FDA-Public Use
  Company Number: US-JNJFOC-20110104064

PATIENT
  Sex: Female
  Weight: 98 kg

DRUGS (15)
  1. HYDROCHLOROTHIAZIDE [Concomitant]
     Route: 048
  2. CRESTOR [Concomitant]
     Route: 048
  3. GOLIMUMAB [Suspect]
     Route: 058
  4. METHOTREXATE [Concomitant]
     Route: 048
  5. GOLIMUMAB [Suspect]
     Route: 058
  6. PLACEBO [Suspect]
     Indication: RHEUMATOID ARTHRITIS
     Route: 058
  7. CYMBALTA [Concomitant]
     Route: 048
  8. OMEPRAZOLE [Concomitant]
     Route: 048
  9. CELEBREX [Concomitant]
     Route: 048
  10. LEVOTHYROXINE [Concomitant]
     Route: 048
  11. AMBIEN [Concomitant]
     Route: 048
  12. GOLIMUMAB [Suspect]
     Indication: RHEUMATOID ARTHRITIS
     Route: 058
  13. METHOTREXATE [Suspect]
     Indication: RHEUMATOID ARTHRITIS
     Route: 048
  14. FOLIC ACID [Concomitant]
     Route: 048
  15. HYDRALAZINE [Concomitant]
     Route: 048

REACTIONS (2)
  - OESOPHAGEAL ULCER HAEMORRHAGE [None]
  - GASTRIC ULCER HAEMORRHAGE [None]
